FAERS Safety Report 5830639-8 (Version None)
Quarter: 2008Q3

REPORT INFORMATION
  Report Type: 
  Country: None (occurrence: None)
  Receive Date: 20080801
  Receipt Date: 20070904
  Transmission Date: 20090109
  Serious: No
  Sender: FDA-Public Use
  Company Number: US-BRISTOL-MYERS SQUIBB COMPANY-13896576

PATIENT
  Age: 52 Year
  Sex: Female
  Weight: 58 kg

DRUGS (2)
  1. COUMADIN [Suspect]
     Indication: PULMONARY EMBOLISM
     Dosage: TAKING 5MG DAILY ALTERNATING WITH 6MG DAILY
     Route: 048
     Dates: start: 20070201
  2. VITAMIN TAB [Concomitant]

REACTIONS (2)
  - BURNING SENSATION [None]
  - JOINT SWELLING [None]
